FAERS Safety Report 9755904 (Version 1)
Quarter: 2013Q4

REPORT INFORMATION
  Report Type: Spontaneous
  Country: US (occurrence: US)
  Receive Date: 20131213
  Receipt Date: 20131213
  Transmission Date: 20140711
  Serious: No
  Sender: FDA-Public Use
  Company Number: US-GLAXOSMITHKLINE-A1025940A

PATIENT
  Sex: Male

DRUGS (1)
  1. NICODERM CQ [Suspect]
     Indication: PRODUCT USED FOR UNKNOWN INDICATION

REACTIONS (3)
  - Adverse drug reaction [Unknown]
  - Oropharyngeal pain [Unknown]
  - Hypoaesthesia oral [Unknown]
